FAERS Safety Report 23869619 (Version 2)
Quarter: 2024Q2

REPORT INFORMATION
  Report Type: Spontaneous
  Country: US (occurrence: US)
  Receive Date: 20240517
  Receipt Date: 20240618
  Transmission Date: 20240716
  Serious: Yes (Other)
  Sender: FDA-Public Use
  Company Number: US-TEVA-VS-3197371

PATIENT
  Age: 68 Year
  Sex: Female

DRUGS (5)
  1. PREDNISONE [Suspect]
     Active Substance: PREDNISONE
     Indication: Pachymeningitis
     Route: 048
  2. PREDNISONE [Suspect]
     Active Substance: PREDNISONE
     Indication: Pachymeningitis
     Dosage: UNSPECIFIED TAPERED DOSE
     Route: 048
  3. RITUXIMAB [Suspect]
     Active Substance: RITUXIMAB
     Indication: Pachymeningitis
     Route: 037
  4. RITUXIMAB [Suspect]
     Active Substance: RITUXIMAB
     Indication: Pachymeningitis
     Route: 042
  5. METHOTREXATE [Suspect]
     Active Substance: METHOTREXATE
     Indication: Pachymeningitis
     Route: 065

REACTIONS (3)
  - Rebound effect [Unknown]
  - Flushing [Unknown]
  - Drug ineffective [Unknown]
